FAERS Safety Report 6941664-8 (Version None)
Quarter: 2010Q3

REPORT INFORMATION
  Report Type: 
  Country: None (occurrence: None)
  Receive Date: 20100825
  Receipt Date: 20100816
  Transmission Date: 20110219
  Serious: Yes (Hospitalization)
  Sender: FDA-Public Use
  Company Number: SK-JNJFOC-20100704547

PATIENT
  Sex: Female

DRUGS (5)
  1. REMICADE [Suspect]
     Indication: RHEUMATOID ARTHRITIS
     Dosage: 4 INFUSIONS TOTAL
     Route: 042
  2. METHOTREXATE [Concomitant]
     Indication: RHEUMATOID ARTHRITIS
  3. PREDNISOLONE [Concomitant]
     Indication: RHEUMATOID ARTHRITIS
  4. ACTONEL [Concomitant]
     Indication: OSTEOPOROSIS
  5. CALTRATE [Concomitant]
     Indication: OSTEOPOROSIS

REACTIONS (6)
  - DIPLOPIA [None]
  - INFECTION [None]
  - PARALYSIS [None]
  - PLEURAL EFFUSION [None]
  - PULMONARY TUBERCULOSIS [None]
  - PYREXIA [None]
